FAERS Safety Report 20713466 (Version 9)
Quarter: 2024Q2

REPORT INFORMATION
  Report Type: Report from Study
  Country: CL (occurrence: CL)
  Receive Date: 20220415
  Receipt Date: 20240604
  Transmission Date: 20240715
  Serious: Yes (Hospitalization, Other)
  Sender: FDA-Public Use
  Company Number: CL-NOVARTISPH-NVSC2020CL041494

PATIENT
  Age: 48 Year
  Sex: Female

DRUGS (14)
  1. SANDOSTATIN LAR DEPOT [Suspect]
     Active Substance: OCTREOTIDE ACETATE
     Indication: Acromegaly
     Dosage: 20 MG, QMO (AMPULE AND INJECTABLE)
     Route: 030
     Dates: start: 20191025
  2. SANDOSTATIN LAR DEPOT [Suspect]
     Active Substance: OCTREOTIDE ACETATE
     Dosage: 30 MG, EVERY 28 DAYS
     Route: 065
     Dates: start: 20191025
  3. SANDOSTATIN LAR DEPOT [Suspect]
     Active Substance: OCTREOTIDE ACETATE
     Dosage: 20X2, QMO
     Route: 030
     Dates: start: 20191025
  4. SANDOSTATIN LAR DEPOT [Suspect]
     Active Substance: OCTREOTIDE ACETATE
     Dosage: 40 MG, QMO
     Route: 030
     Dates: start: 20191025
  5. SANDOSTATIN LAR DEPOT [Suspect]
     Active Substance: OCTREOTIDE ACETATE
     Dosage: 20 MG
     Route: 030
     Dates: start: 20191123
  6. SANDOSTATIN LAR DEPOT [Suspect]
     Active Substance: OCTREOTIDE ACETATE
     Dosage: 30 MG, QMO
     Route: 030
     Dates: start: 20191221
  7. SANDOSTATIN LAR DEPOT [Suspect]
     Active Substance: OCTREOTIDE ACETATE
     Dosage: 30 MG, QMO (3 MONTHS AGO APPROXIMATELY)
     Route: 030
  8. SANDOSTATIN LAR DEPOT [Suspect]
     Active Substance: OCTREOTIDE ACETATE
     Dosage: (1X30 MG), QMO
     Route: 030
  9. SANDOSTATIN LAR DEPOT [Suspect]
     Active Substance: OCTREOTIDE ACETATE
     Dosage: 20 MG, EVERY 35 DAYS
     Route: 030
  10. CABERGOLINE [Concomitant]
     Active Substance: CABERGOLINE
     Indication: Product used for unknown indication
     Dosage: UNK
     Route: 065
  11. LEVOTHYROXINE SODIUM [Concomitant]
     Active Substance: LEVOTHYROXINE SODIUM
     Indication: Product used for unknown indication
     Dosage: 1 DOSAGE FORM (1 FROM MONDAY TO FRIDAY)
     Route: 065
  12. LEVOTHYROXINE SODIUM [Concomitant]
     Active Substance: LEVOTHYROXINE SODIUM
     Dosage: UNK, (1 1/2 ON SATURDAY AND SUNDAY)
     Route: 065
  13. METFORMIN [Concomitant]
     Active Substance: METFORMIN HYDROCHLORIDE
     Indication: Product used for unknown indication
     Dosage: 850 MG, QD
     Route: 065
  14. DOSTINEX [Concomitant]
     Active Substance: CABERGOLINE
     Indication: Product used for unknown indication
     Dosage: 0.5 MG, BID (2 TABLETS TUESDAY AND 1.5 FRIDAY)
     Route: 065

REACTIONS (22)
  - Motor dysfunction [Recovering/Resolving]
  - Spinal disorder [Unknown]
  - Anxiety [Unknown]
  - Nervousness [Unknown]
  - Boredom [Unknown]
  - Confusional state [Unknown]
  - Memory impairment [Unknown]
  - Weight decreased [Unknown]
  - Overweight [Unknown]
  - Pain [Unknown]
  - Self esteem decreased [Unknown]
  - Thyroid disorder [Unknown]
  - Feeling abnormal [Unknown]
  - Headache [Unknown]
  - Disorientation [Unknown]
  - Myalgia [Unknown]
  - Injection site pain [Unknown]
  - Injection site discomfort [Unknown]
  - Depression [Unknown]
  - Drug ineffective [Unknown]
  - Product prescribing error [Unknown]
  - Inappropriate schedule of product administration [Unknown]

NARRATIVE: CASE EVENT DATE: 20220408
